FAERS Safety Report 6708726-1 (Version None)
Quarter: 2010Q2

REPORT INFORMATION
  Report Type: 
  Country: None (occurrence: None)
  Receive Date: 20100504
  Receipt Date: 20100420
  Transmission Date: 20101027
  Serious: Yes (Other)
  Sender: FDA-Public Use
  Company Number: GB-RANBAXY-2010RR-33422

PATIENT
  Age: 55 Year
  Sex: Female

DRUGS (4)
  1. FLUOXETINE [Suspect]
     Indication: DEPRESSION
     Dosage: 40 MG, QD
     Route: 048
     Dates: start: 20100321, end: 20100325
  2. ADCAL [Concomitant]
     Indication: OSTEOPOROSIS
     Dosage: 1 DF, BID
     Route: 048
     Dates: start: 20081001
  3. IBUPROFEN [Concomitant]
     Indication: FIBROMYALGIA
     Dosage: 400 MG, QD
     Route: 048
  4. PARACETAMOL [Concomitant]
     Indication: FIBROMYALGIA
     Dosage: 2 DF, UNK
     Route: 048

REACTIONS (4)
  - PANIC ATTACK [None]
  - PARANOIA [None]
  - SUICIDAL IDEATION [None]
  - TEARFULNESS [None]
